FAERS Safety Report 6644224-1 (Version None)
Quarter: 2010Q1

REPORT INFORMATION
  Report Type: 
  Country: None (occurrence: None)
  Receive Date: 20100319
  Receipt Date: 20100319
  Transmission Date: 20100710
  Serious: Yes (Other)
  Sender: FDA-Public Use
  Company Number: None

PATIENT
  Age: 70 Year
  Sex: Female
  Weight: 80.7403 kg

DRUGS (2)
  1. FLUCONAZOLE [Suspect]
     Indication: VULVOVAGINAL MYCOTIC INFECTION
     Dosage: 1 TAB - FOR 7 DAYS (MOUTH) 1 DAILY 7 DAYS
     Route: 048
     Dates: start: 20091209, end: 20091213
  2. NITROFUR-MACR/100MG/MYLAN [Suspect]
     Indication: CYSTITIS
     Dosage: 1 CAP 2X DAY FOR 3 DAYS 2 DAILY 3 DAYS
     Dates: start: 20091216, end: 20091219

REACTIONS (5)
  - EYE IRRITATION [None]
  - HERPES ZOSTER [None]
  - PRURITUS [None]
  - PRURITUS GENERALISED [None]
  - URTICARIA [None]
